FAERS Safety Report 10568047 (Version 1)
Quarter: 2014Q4

REPORT INFORMATION
  Report Type: Spontaneous
  Country: US (occurrence: None)
  Receive Date: 20141105
  Receipt Date: 20141105
  Transmission Date: 20150529
  Serious: No
  Sender: FDA-Public Use
  Company Number: None

PATIENT
  Age: 70 Year
  Sex: Female
  Weight: 65.32 kg

DRUGS (5)
  1. GARLIC. [Concomitant]
     Active Substance: GARLIC
  2. HORMONES [Concomitant]
     Active Substance: UNSPECIFIED INGREDIENT
  3. BIOTIN [Concomitant]
     Active Substance: BIOTIN
  4. BOTOX [Suspect]
     Active Substance: ONABOTULINUMTOXINA
     Indication: SKIN COSMETIC PROCEDURE
  5. FIBER [Concomitant]
     Active Substance: PSYLLIUM HUSK

REACTIONS (7)
  - Facial pain [None]
  - Neck pain [None]
  - Ear pain [None]
  - Headache [None]
  - Oropharyngeal pain [None]
  - Dry eye [None]
  - Influenza [None]

NARRATIVE: CASE EVENT DATE: 20141026
